FAERS Safety Report 6145659-6 (Version None)
Quarter: 2009Q2

REPORT INFORMATION
  Report Type: 
  Country: None (occurrence: None)
  Receive Date: 20090406
  Receipt Date: 20090406
  Transmission Date: 20091009
  Serious: Yes (Life-Threatening, Hospitalization, Other)
  Sender: FDA-Public Use
  Company Number: None

PATIENT
  Age: 49 Year
  Sex: Female
  Weight: 77.1115 kg

DRUGS (1)
  1. FLUPHENAZINE DECANOATE [Suspect]
     Indication: SCHIZOPHRENIA
     Dosage: EVERY 2 WKS. DISCONTINUED
     Dates: start: 20090225

REACTIONS (22)
  - ABDOMINAL PAIN [None]
  - ABDOMINAL PAIN UPPER [None]
  - ARTHRALGIA [None]
  - CHEST PAIN [None]
  - CHROMATURIA [None]
  - CONSTIPATION [None]
  - DEHYDRATION [None]
  - DERMATITIS CONTACT [None]
  - HEADACHE [None]
  - HYPOAESTHESIA [None]
  - INJECTION SITE ERYTHEMA [None]
  - INJECTION SITE PAIN [None]
  - MUSCULOSKELETAL STIFFNESS [None]
  - MYALGIA [None]
  - NECK PAIN [None]
  - NO THERAPEUTIC RESPONSE [None]
  - ONYCHOCLASIS [None]
  - OROPHARYNGEAL PAIN [None]
  - PRURITUS [None]
  - RASH [None]
  - RESTLESSNESS [None]
  - SOMNOLENCE [None]
